FAERS Safety Report 7289357-4 (Version None)
Quarter: 2011Q1

REPORT INFORMATION
  Report Type: 
  Country: None (occurrence: None)
  Receive Date: 20110211
  Receipt Date: 20110204
  Transmission Date: 20110831
  Serious: Yes (Hospitalization, Other)
  Sender: FDA-Public Use
  Company Number: FR-PFIZER INC-2011025880

PATIENT
  Age: 93 Year
  Sex: Male

DRUGS (14)
  1. XANAX [Suspect]
     Dosage: 0.25 MG, 1X/DAY, IN THE EVENINGS
     Dates: start: 20101101, end: 20101101
  2. EXIBA [Suspect]
     Dosage: 20 MG, UNK
  3. EDUCTYL [Concomitant]
     Dosage: UNKNOWN
  4. CACIT D3 [Concomitant]
     Dosage: 500 MG/ 400 IU; 1 AT LUNCH
  5. TADENAN [Concomitant]
     Dosage: 50 MG, 1 PER DAY IN THE MORNING
  6. XANAX [Suspect]
     Dosage: 0.25 MG, 2X/DAY
     Route: 048
     Dates: end: 20101101
  7. SERESTA [Suspect]
     Dosage: 10 MG, 1X/DAY
     Route: 048
  8. MIANSERIN HYDROCHLORIDE [Suspect]
     Dosage: UNK
     Route: 048
  9. DAFALGAN [Concomitant]
     Dosage: 500 MG, 1 DOSAGE FORM THRICE DAILY
  10. CELLUVISC [Concomitant]
     Dosage: 1 DF, THRICE DAILY, IN THE RIGHT EYE
  11. VITAMIN A ^DULCIS^ [Concomitant]
     Dosage: 1 PER DAY ON THE RIGHT EYE
  12. FORLAX [Concomitant]
     Dosage: 4000, 2 APPLICATIONS IN THE MORNING
  13. EUPHYTOSE [Concomitant]
     Dosage: 1 DF, THRICE DAILY
  14. MICROLAX [Concomitant]
     Dosage: UNKNOWN

REACTIONS (4)
  - DEHYDRATION [None]
  - ABNORMAL BEHAVIOUR [None]
  - SOMNAMBULISM [None]
  - SOMNOLENCE [None]
